FAERS Safety Report 7355310-5 (Version None)
Quarter: 2011Q1

REPORT INFORMATION
  Report Type: 
  Country: None (occurrence: None)
  Receive Date: 20110316
  Receipt Date: 20110315
  Transmission Date: 20110831
  Serious: Yes (Other)
  Sender: FDA-Public Use
  Company Number: BR-ROCHE-700754

PATIENT
  Sex: Female

DRUGS (1)
  1. ROACUTAN [Suspect]
     Route: 048
     Dates: end: 20100301

REACTIONS (2)
  - ULTRASOUND ANTENATAL SCREEN ABNORMAL [None]
  - PREGNANCY [None]
